FAERS Safety Report 15948014 (Version 1)
Quarter: 2019Q1

REPORT INFORMATION
  Report Type: Report from Study
  Country: US (occurrence: US)
  Receive Date: 20190212
  Receipt Date: 20190212
  Transmission Date: 20190417
  Serious: Yes (Death, Life-Threatening, Hospitalization, Other)
  Sender: FDA-Public Use
  Company Number: US-SA-2019SA038527

PATIENT
  Age: 68 Year
  Sex: Female
  Weight: 96 kg

DRUGS (31)
  1. FLUOROURACIL. [Suspect]
     Active Substance: FLUOROURACIL
     Dosage: 4850 MG, QOW
     Route: 042
     Dates: start: 20181130, end: 20181130
  2. FOLIC ACID. [Concomitant]
     Active Substance: FOLIC ACID
     Dosage: UNK
     Dates: start: 20150215
  3. ELIQUIS [Concomitant]
     Active Substance: APIXABAN
     Dosage: UNK
  4. PROCHLORPERAZINE. [Concomitant]
     Active Substance: PROCHLORPERAZINE
     Dosage: UNK
     Dates: start: 20181030
  5. OXALIPLATIN. [Suspect]
     Active Substance: OXALIPLATIN
     Indication: PANCREATIC CARCINOMA METASTATIC
     Dosage: UNK UNK, QOW
     Route: 042
     Dates: start: 20181128, end: 20181128
  6. ONDANSETRON HYDROCHLORIDE. [Concomitant]
     Active Substance: ONDANSETRON HYDROCHLORIDE
     Dosage: UNK
     Dates: start: 20181017
  7. COMPAZINE [PROCHLORPERAZINE EDISYLATE] [Concomitant]
     Active Substance: PROCHLORPERAZINE EDISYLATE
     Dosage: UNK
  8. LIDOCAINE;PRILOCAINE [Concomitant]
     Dosage: UNK
  9. BENFOTIAMINE [Concomitant]
     Active Substance: BENFOTIAMINE
     Dosage: UNK
     Dates: start: 20180821
  10. ZOLPIDEM [Concomitant]
     Active Substance: ZOLPIDEM\ZOLPIDEM TARTRATE
     Dosage: UNK
     Dates: start: 20171018
  11. LORAZEPAM. [Concomitant]
     Active Substance: LORAZEPAM
     Dosage: UNK
     Dates: start: 20180531
  12. FLUOROURACIL. [Suspect]
     Active Substance: FLUOROURACIL
     Dosage: 808 MG, QCY
     Route: 040
     Dates: start: 20181024, end: 20181024
  13. FUROSEMIDE. [Concomitant]
     Active Substance: FUROSEMIDE
     Dosage: UNK
     Dates: start: 20150115
  14. AUGMENTIN [Concomitant]
     Active Substance: AMOXICILLIN\CLAVULANATE POTASSIUM
     Dosage: UNK
     Dates: start: 20181113
  15. FOLINIC ACID [Suspect]
     Active Substance: LEUCOVORIN
     Dosage: 808 MG, QOW
     Route: 042
     Dates: start: 20181128, end: 20181128
  16. FOLINIC ACID [Suspect]
     Active Substance: LEUCOVORIN
     Dosage: 808 MG, QOW
     Route: 042
     Dates: start: 20181024, end: 20181024
  17. LIVALO [Concomitant]
     Active Substance: PITAVASTATIN CALCIUM
     Dosage: UNK
     Dates: start: 20180628
  18. OXALIPLATIN. [Suspect]
     Active Substance: OXALIPLATIN
     Dosage: 172 MG, QOW
     Route: 042
     Dates: start: 20181024, end: 20181024
  19. FLUOROURACIL. [Suspect]
     Active Substance: FLUOROURACIL
     Dosage: 4850 MG, QOW
     Route: 042
     Dates: start: 20181024, end: 20181024
  20. POTASSIUM CHLORIDE. [Concomitant]
     Active Substance: POTASSIUM CHLORIDE
     Dosage: UNK
     Dates: start: 20150115
  21. TRAMADOL HYDROCHLORIDE. [Concomitant]
     Active Substance: TRAMADOL HYDROCHLORIDE
     Dosage: UNK
     Dates: start: 20180613
  22. ULORIC [Concomitant]
     Active Substance: FEBUXOSTAT
     Dosage: UNK
     Dates: start: 20180618
  23. SYSTANE (HYPROMELLOSE 2910 (4000 MPA.S)) [Concomitant]
     Active Substance: HYPROMELLOSE 2910 (4000 MPA.S)
     Dosage: UNK
     Dates: start: 20180928
  24. GENTEAL [CARMELLOSE SODIUM;HYPROMELLOSE] [Concomitant]
     Dosage: UNK
     Dates: start: 20180928
  25. PROMETHAZINE [Concomitant]
     Active Substance: PROMETHAZINE\PROMETHAZINE HYDROCHLORIDE
     Dosage: UNK
     Dates: start: 20181128
  26. OLANZAPINE. [Concomitant]
     Active Substance: OLANZAPINE
     Dosage: UNK
     Dates: start: 20181128
  27. KETOROLAC [Concomitant]
     Active Substance: KETOROLAC\KETOROLAC TROMETHAMINE
     Dosage: UNK
     Dates: start: 20181024
  28. MIRALAX [Concomitant]
     Active Substance: POLYETHYLENE GLYCOL 3350
     Dosage: UNK
  29. FLUOROURACIL. [Suspect]
     Active Substance: FLUOROURACIL
     Indication: PANCREATIC CARCINOMA METASTATIC
     Dosage: 808 MG, QOW
     Route: 040
     Dates: start: 20181130, end: 20181130
  30. CREON [Concomitant]
     Active Substance: PANCRELIPASE AMYLASE\PANCRELIPASE LIPASE\PANCRELIPASE PROTEASE
     Dosage: UNK
     Dates: start: 20180618
  31. INSULIN DEGLUDEC [Concomitant]
     Active Substance: INSULIN DEGLUDEC
     Dosage: UNK
     Dates: start: 20180430

REACTIONS (9)
  - Sepsis [Fatal]
  - Anaemia [Unknown]
  - Fall [Unknown]
  - Asthenia [Unknown]
  - Hypotension [Unknown]
  - Lethargy [Unknown]
  - Gastrointestinal haemorrhage [Recovering/Resolving]
  - Decreased appetite [Unknown]
  - Liver abscess [Unknown]

NARRATIVE: CASE EVENT DATE: 20181216
